FAERS Safety Report 9498203 (Version 2)
Quarter: 2013Q3

REPORT INFORMATION
  Report Type: Spontaneous
  Country: IE (occurrence: IE)
  Receive Date: 20130904
  Receipt Date: 20130918
  Transmission Date: 20140515
  Serious: Yes (Hospitalization)
  Sender: FDA-Public Use
  Company Number: IE-COVIDIEN/TYCO HEALTHCARE/MALLINCKRODT-T201304233

PATIENT
  Age: 41 Year
  Sex: Female

DRUGS (5)
  1. OPTIRAY 300 [Suspect]
     Indication: SCAN
     Dosage: 80 ML, SINGLE, 3MLS/SEC
     Route: 042
     Dates: start: 20130827, end: 20130827
  2. PACLITAXEL [Concomitant]
     Indication: PRODUCT USED FOR UNKNOWN INDICATION
     Dosage: 51 MG, UNK
     Route: 042
  3. DEXAMETHASONE [Concomitant]
     Indication: PRODUCT USED FOR UNKNOWN INDICATION
     Dosage: 8 MG, UNK
     Route: 042
  4. CHLORPHENIRAMINE                   /00072501/ [Concomitant]
     Indication: PRODUCT USED FOR UNKNOWN INDICATION
     Route: 042
  5. RANITIDINE [Concomitant]
     Indication: PRODUCT USED FOR UNKNOWN INDICATION
     Dosage: 50 MG, UNK
     Route: 042

REACTIONS (4)
  - Convulsion [Recovered/Resolved]
  - Chest discomfort [Recovered/Resolved]
  - Palpitations [Recovered/Resolved]
  - Flushing [Recovered/Resolved]
